FAERS Safety Report 25220048 (Version 2)
Quarter: 2025Q3

REPORT INFORMATION
  Report Type: Spontaneous
  Country: US (occurrence: US)
  Receive Date: 20250421
  Receipt Date: 20250908
  Transmission Date: 20251020
  Serious: No
  Sender: ELI LILLY AND COMPANY
  Company Number: US-ELI_LILLY_AND_COMPANY-US202504016880

PATIENT
  Age: 57 Year
  Sex: Female

DRUGS (1)
  1. VERZENIO [Suspect]
     Active Substance: ABEMACICLIB
     Indication: Meningioma malignant
     Dosage: 100 MG, BID
     Route: 048

REACTIONS (4)
  - Off label use [Unknown]
  - Constipation [Unknown]
  - Diarrhoea [Recovered/Resolved]
  - Asthenia [Unknown]
